FAERS Safety Report 13646533 (Version 1)
Quarter: 2017Q2

REPORT INFORMATION
  Report Type: Spontaneous
  Country: US (occurrence: US)
  Receive Date: 20170613
  Receipt Date: 20170613
  Transmission Date: 20170830
  Serious: No
  Sender: FDA-Public Use
  Company Number: US-PFIZER INC-2017252596

PATIENT
  Age: 68 Year
  Sex: Female

DRUGS (1)
  1. IBRANCE [Suspect]
     Active Substance: PALBOCICLIB
     Dosage: 125 MG, CYCLIC (1 CAPSULE, EVERY 21 DAYS, THEN 7 DAYS OFF)
     Route: 048
     Dates: start: 20170503, end: 20170607

REACTIONS (4)
  - Dry mouth [Unknown]
  - Neutrophil count decreased [Unknown]
  - Blood glucose increased [Unknown]
  - Insomnia [Unknown]
